FAERS Safety Report 10066645 (Version 1)
Quarter: 2014Q2

REPORT INFORMATION
  Report Type: Spontaneous
  Country: US (occurrence: US)
  Receive Date: 20140408
  Receipt Date: 20140408
  Transmission Date: 20141212
  Serious: Yes (Other)
  Sender: FDA-Public Use
  Company Number: US-GILEAD-2014-0098572

PATIENT
  Age: 53 Year
  Sex: Female

DRUGS (2)
  1. SOVALDI [Suspect]
     Indication: HEPATITIS C
     Route: 065
  2. RIBAVIRIN [Suspect]
     Indication: HEPATITIS C
     Route: 065

REACTIONS (7)
  - Limb injury [Unknown]
  - Senile dementia [Unknown]
  - Feeling abnormal [Unknown]
  - Abnormal dreams [Unknown]
  - Emotional disorder [Unknown]
  - Fatigue [Unknown]
  - Pruritus [Unknown]
